FAERS Safety Report 6362053-3 (Version None)
Quarter: 2009Q3

REPORT INFORMATION
  Report Type: 
  Country: None (occurrence: None)
  Receive Date: 20090918
  Receipt Date: 20090907
  Transmission Date: 20100115
  Serious: Yes (Other)
  Sender: FDA-Public Use
  Company Number: PHHY2009JP33428

PATIENT

DRUGS (1)
  1. AREDIA [Suspect]
     Indication: OSTEOGENESIS IMPERFECTA
     Route: 042

REACTIONS (1)
  - VASCULITIS [None]
